FAERS Safety Report 6652986-2 (Version None)
Quarter: 2010Q1

REPORT INFORMATION
  Report Type: 
  Country: None (occurrence: None)
  Receive Date: 20100326
  Receipt Date: 20100315
  Transmission Date: 20100710
  Serious: Yes (Other)
  Sender: FDA-Public Use
  Company Number: PHHY2010DE01361

PATIENT
  Sex: Female
  Weight: 60 kg

DRUGS (2)
  1. CGS 20267 T30748+ [Suspect]
     Indication: BREAST CANCER
     Dosage: 2.5 MG DAILY
     Route: 048
     Dates: start: 20090613
  2. OMEP [Concomitant]
     Dosage: UNK
     Dates: start: 20030101

REACTIONS (4)
  - ARTHRALGIA [None]
  - EYE HAEMORRHAGE [None]
  - HOT FLUSH [None]
  - MUSCULAR WEAKNESS [None]
